APPROVED DRUG PRODUCT: DILTIAZEM HYDROCHLORIDE
Active Ingredient: DILTIAZEM HYDROCHLORIDE
Strength: 240MG
Dosage Form/Route: CAPSULE, EXTENDED RELEASE;ORAL
Application: A075124 | Product #001
Applicant: PHARMOBEDIENT CONSULTING LLC
Approved: Mar 18, 1998 | RLD: No | RS: No | Type: DISCN